FAERS Safety Report 18434958 (Version 1)
Quarter: 2020Q4

REPORT INFORMATION
  Report Type: Spontaneous
  Country: US (occurrence: US)
  Receive Date: 20201028
  Receipt Date: 20201028
  Transmission Date: 20210114
  Serious: No
  Sender: FDA-Public Use
  Company Number: US-DRREDDYS-USA/USA/20/0127966

PATIENT
  Sex: Female

DRUGS (2)
  1. GUAIFENESIN AND PSEUDOEPHEDRINE HYDROCHLORIDE EXTENDED-RELEASE TABLETS [Suspect]
     Active Substance: GUAIFENESIN\PSEUDOEPHEDRINE HYDROCHLORIDE
     Dosage: GUAIFENESIN AND PSEUDOEPHEDRINE HCL EXTENDED-RELEASE TABLETS 1200 MG/120 MG.
     Route: 048
  2. GUAIFENESIN AND PSEUDOEPHEDRINE HYDROCHLORIDE EXTENDED-RELEASE TABLETS [Suspect]
     Active Substance: GUAIFENESIN\PSEUDOEPHEDRINE HYDROCHLORIDE
     Indication: PRODUCT USED FOR UNKNOWN INDICATION
     Dosage: GUAIFENESIN AND PSEUDOEPHEDRINE HCL EXTENDED-RELEASE TABLETS 1200 MG/120 MG.
     Route: 048

REACTIONS (1)
  - Inappropriate schedule of product administration [Unknown]
